FAERS Safety Report 6177583-7 (Version None)
Quarter: 2009Q2

REPORT INFORMATION
  Report Type: 
  Country: None (occurrence: None)
  Receive Date: 20090504
  Receipt Date: 20090422
  Transmission Date: 20091009
  Serious: Yes (Other)
  Sender: FDA-Public Use
  Company Number: US-PFIZER INC-2009204151

PATIENT
  Sex: Female
  Weight: 43.091 kg

DRUGS (5)
  1. XALATAN [Suspect]
     Indication: GLAUCOMA
  2. ADDERALL 10 [Concomitant]
     Dosage: UNK
  3. PREDNISONE [Concomitant]
     Dosage: UNK
  4. ALL OTHER THERAPEUTIC PRODUCTS [Concomitant]
     Dosage: UNK
  5. DRUG, UNSPECIFIED [Concomitant]
     Dosage: UNK

REACTIONS (4)
  - BLINDNESS [None]
  - BODY HEIGHT DECREASED [None]
  - DRY EYE [None]
  - THYROID DISORDER [None]
